FAERS Safety Report 17201597 (Version 1)
Quarter: 2020Q1

REPORT INFORMATION
  Report Type: Spontaneous
  Country: US (occurrence: US)
  Receive Date: 20191224
  Receipt Date: 20191224
  Transmission Date: 20200409
  Serious: No
  Sender: FDA-Public Use
  Company Number: None

PATIENT
  Age: 70 Year
  Sex: Female
  Weight: 124.6 kg

DRUGS (2)
  1. NAFCILLIN IN 0.9% SODIUM CHLORIDE [Suspect]
     Active Substance: NAFCILLIN SODIUM
     Indication: STAPHYLOCOCCAL SEPSIS
     Dates: start: 20191211, end: 20191218
  2. DOPAMINE [Suspect]
     Active Substance: DOPAMINE HYDROCHLORIDE
     Indication: SEPTIC SHOCK
     Dates: start: 20191211, end: 20191215

REACTIONS (3)
  - Product deposit [None]
  - Suspected product contamination [None]
  - Complication associated with device [None]

NARRATIVE: CASE EVENT DATE: 20191215
